FAERS Safety Report 9287509 (Version 4)
Quarter: 2013Q3

REPORT INFORMATION
  Report Type: Spontaneous
  Country: US (occurrence: US)
  Receive Date: 20130514
  Receipt Date: 20130913
  Transmission Date: 20140515
  Serious: Yes (Hospitalization)
  Sender: FDA-Public Use
  Company Number: US-BIOGENIDEC-2013BI041885

PATIENT
  Age: 61 Year
  Sex: Male

DRUGS (1)
  1. TYSABRI [Suspect]
     Indication: MULTIPLE SCLEROSIS
     Route: 042
     Dates: start: 20120702, end: 201306

REACTIONS (9)
  - Encephalopathy [Unknown]
  - Asthenia [Unknown]
  - Dyspnoea [Unknown]
  - Dysuria [Unknown]
  - Neurogenic bladder [Unknown]
  - Urinary tract infection [Recovered/Resolved]
  - Bronchitis [Unknown]
  - Pneumonia [Recovered/Resolved]
  - Sepsis [Unknown]
